FAERS Safety Report 5878061-2 (Version None)
Quarter: 2008Q3

REPORT INFORMATION
  Report Type: 
  Country: None (occurrence: None)
  Receive Date: 20080911
  Receipt Date: 20080905
  Transmission Date: 20090109
  Serious: Yes (Other)
  Sender: FDA-Public Use
  Company Number: DE-TYCO HEALTHCARE/MALLINCKRODT-T200801455

PATIENT

DRUGS (1)
  1. OPTIRAY 300 [Suspect]
     Indication: UROGRAM
     Dosage: UNK, UNK
     Route: 042

REACTIONS (1)
  - BRONCHOSPASM [None]
